FAERS Safety Report 6746365-7 (Version None)
Quarter: 2010Q2

REPORT INFORMATION
  Report Type: 
  Country: None (occurrence: None)
  Receive Date: 20100528
  Receipt Date: 20100517
  Transmission Date: 20101027
  Serious: Yes (Death, Life-Threatening, Other)
  Sender: FDA-Public Use
  Company Number: JP-ROCHE-660828

PATIENT
  Sex: Female
  Weight: 43 kg

DRUGS (10)
  1. AVASTIN [Suspect]
     Indication: LARGE INTESTINE CARCINOMA
     Route: 041
     Dates: start: 20090812, end: 20090812
  2. AVASTIN [Suspect]
     Route: 041
     Dates: start: 20090831, end: 20090831
  3. ELPLAT [Concomitant]
     Route: 041
     Dates: start: 20090812, end: 20090812
  4. ELPLAT [Concomitant]
     Route: 041
     Dates: start: 20090831, end: 20090831
  5. FLUOROURACIL [Concomitant]
     Dosage: ROUTE: INTRAVENOUS BOLUS
     Route: 042
     Dates: start: 20090812, end: 20090812
  6. FLUOROURACIL [Concomitant]
     Dosage: ROUTE: INTRAVENOUS DRIP
     Route: 042
     Dates: start: 20090812, end: 20090814
  7. FLUOROURACIL [Concomitant]
     Dosage: ROUTE: INTRAVENOUS BOLUS.
     Route: 042
     Dates: start: 20090831, end: 20090831
  8. FLUOROURACIL [Concomitant]
     Dosage: ROUTE: INTRAVENOUS DRIP
     Route: 042
     Dates: start: 20090831, end: 20090902
  9. LEUCOVORIN CALCIUM [Concomitant]
     Route: 041
     Dates: start: 20090812, end: 20090812
  10. LEUCOVORIN CALCIUM [Concomitant]
     Route: 041
     Dates: start: 20090831, end: 20090831

REACTIONS (12)
  - CHOLECYSTITIS ACUTE [None]
  - CHOLESTASIS [None]
  - DISEASE PROGRESSION [None]
  - DISSEMINATED INTRAVASCULAR COAGULATION [None]
  - GASTROINTESTINAL PERFORATION [None]
  - PLEURAL EFFUSION [None]
  - PNEUMONIA [None]
  - PNEUMONIA STAPHYLOCOCCAL [None]
  - RETROPERITONEAL ABSCESS [None]
  - SEPSIS [None]
  - SEPTIC SHOCK [None]
  - SMALL INTESTINAL PERFORATION [None]
